FAERS Safety Report 21377537 (Version 2)
Quarter: 2023Q1

REPORT INFORMATION
  Report Type: Spontaneous
  Country: US (occurrence: US)
  Receive Date: 20220926
  Receipt Date: 20230124
  Transmission Date: 20230418
  Serious: No
  Sender: FDA-Public Use
  Company Number: US-PFIZER INC-PV202200067809

PATIENT
  Age: 72 Year
  Sex: Female

DRUGS (4)
  1. IBRANCE [Interacting]
     Active Substance: PALBOCICLIB
     Dosage: 75 MG
  2. MODERNA COVID-19 VACCINE [Suspect]
     Active Substance: ELASOMERAN
     Dosage: BOOSTER DOSE, SINGLE
  3. XGEVA [Interacting]
     Active Substance: DENOSUMAB
     Dosage: UNK
  4. OMEPRAZOLE [Interacting]
     Active Substance: OMEPRAZOLE
     Dosage: UNK

REACTIONS (5)
  - White blood cell count decreased [Unknown]
  - Myalgia [Unknown]
  - Drug interaction [Unknown]
  - Bone pain [Unknown]
  - Joint range of motion decreased [Unknown]
